FAERS Safety Report 5799081-2 (Version None)
Quarter: 2008Q3

REPORT INFORMATION
  Report Type: 
  Country: None (occurrence: None)
  Receive Date: 20080701
  Receipt Date: 20080623
  Transmission Date: 20090109
  Serious: Yes (Death)
  Sender: FDA-Public Use
  Company Number: WWISSUE-192

PATIENT
  Sex: Female

DRUGS (5)
  1. CEFAZOLIN [Suspect]
     Dosage: 1GM/IV
     Route: 042
  2. VERSED [Concomitant]
  3. FENTANYL [Concomitant]
  4. NARCAN [Concomitant]
  5. EPINEPHRINE [Concomitant]

REACTIONS (6)
  - APNOEA [None]
  - BLOOD PRESSURE DECREASED [None]
  - COUGH [None]
  - DRUG EFFECT DECREASED [None]
  - FEELING ABNORMAL [None]
  - OXYGEN SATURATION DECREASED [None]
